FAERS Safety Report 25876809 (Version 1)
Quarter: 2025Q4

REPORT INFORMATION
  Report Type: Report from Study
  Country: US (occurrence: US)
  Receive Date: 20251003
  Receipt Date: 20251003
  Transmission Date: 20260118
  Serious: Yes (Other)
  Sender: TAKEDA
  Company Number: US-TAKEDA-2025TUS054967

PATIENT
  Age: 29 Year
  Sex: Female
  Weight: 156 kg

DRUGS (2)
  1. FRUQUINTINIB [Suspect]
     Active Substance: FRUQUINTINIB
     Indication: Rectal cancer
     Dosage: 5 MILLIGRAM, QD
     Dates: start: 20250430
  2. FRUQUINTINIB [Suspect]
     Active Substance: FRUQUINTINIB
     Dosage: 5 MILLIGRAM

REACTIONS (8)
  - Rectal cancer [Unknown]
  - Dyspnoea [Recovered/Resolved]
  - Hiccups [Unknown]
  - Cough [Unknown]
  - Skin wound [Unknown]
  - Skin lesion [Unknown]
  - Skin laceration [Unknown]
  - Fatigue [Recovering/Resolving]
